FAERS Safety Report 6820438-2 (Version None)
Quarter: 2010Q3

REPORT INFORMATION
  Report Type: 
  Country: None (occurrence: None)
  Receive Date: 20100707
  Receipt Date: 20100625
  Transmission Date: 20110219
  Serious: Yes (Other)
  Sender: FDA-Public Use
  Company Number: JP-PFIZER INC-2010073011

PATIENT
  Age: 87 Year
  Sex: Female
  Weight: 55 kg

DRUGS (5)
  1. CABASER [Suspect]
     Dosage: 2 MG, 1X/DAY
     Route: 048
  2. MENESIT [Concomitant]
     Dosage: 150 MG, 3X/DAY
     Route: 048
  3. DOPS [Concomitant]
     Dosage: 100 MG, 3X/DAY
     Route: 048
  4. MUCOSTA [Concomitant]
     Dosage: 100 MG, 3X/DAY
     Route: 048
  5. MAGNESIUM OXIDE [Concomitant]
     Dosage: 250 MG, 2X/DAY
     Route: 048

REACTIONS (2)
  - LYMPHOCYTE COUNT DECREASED [None]
  - WHITE BLOOD CELL COUNT DECREASED [None]
